FAERS Safety Report 12468870 (Version 2)
Quarter: 2016Q3

REPORT INFORMATION
  Report Type: Spontaneous
  Country: JP (occurrence: JP)
  Receive Date: 20160615
  Receipt Date: 20160707
  Transmission Date: 20161109
  Serious: Yes (Hospitalization, Other)
  Sender: FDA-Public Use
  Company Number: JP-JNJFOC-20160606119

PATIENT
  Age: 27 Year
  Sex: Male

DRUGS (2)
  1. INFLIXIMAB, RECOMBINANT [Suspect]
     Active Substance: INFLIXIMAB
     Indication: PSORIASIS
     Dosage: INFUSED 2 AND 6 WEEKS FOLLOWING THE FIRST INFUSION AND EVERY 8 WEEKS THEREAFTER
     Route: 042
  2. INFLIXIMAB, RECOMBINANT [Suspect]
     Active Substance: INFLIXIMAB
     Indication: UVEITIS
     Dosage: INFUSED 2 AND 6 WEEKS FOLLOWING THE FIRST INFUSION AND EVERY 8 WEEKS THEREAFTER
     Route: 042

REACTIONS (4)
  - Off label use [Unknown]
  - Cataract [Unknown]
  - Product use issue [Unknown]
  - Vitreous haemorrhage [Recovered/Resolved]
